FAERS Safety Report 10128507 (Version 2)
Quarter: 2014Q2

REPORT INFORMATION
  Report Type: Spontaneous
  Country: US (occurrence: US)
  Receive Date: 20140428
  Receipt Date: 20140428
  Transmission Date: 20141212
  Serious: Yes (Other)
  Sender: FDA-Public Use
  Company Number: US-RANBAXY-2011US-44835

PATIENT
  Age: 48 Year
  Sex: Male

DRUGS (4)
  1. SERTRALINE [Suspect]
     Indication: DEPRESSIVE SYMPTOM
     Dosage: 50 MG, DAILY
     Route: 065
  2. SERTRALINE [Suspect]
     Indication: PANIC ATTACK
  3. SERTRALINE [Suspect]
     Indication: IMPULSE-CONTROL DISORDER
  4. SERTRALINE [Suspect]
     Indication: IRRITABILITY

REACTIONS (2)
  - Apathy [Recovered/Resolved]
  - Anhedonia [Recovered/Resolved]
